FAERS Safety Report 12381505 (Version 3)
Quarter: 2016Q2

REPORT INFORMATION
  Report Type: Spontaneous
  Country: US (occurrence: US)
  Receive Date: 20160518
  Receipt Date: 20160621
  Transmission Date: 20160815
  Serious: Yes (Other)
  Sender: FDA-Public Use
  Company Number: US-009507513-1605USA006902

PATIENT
  Age: 64 Year
  Sex: Male

DRUGS (4)
  1. CEFTAROLINE FOSAMIL ACETATE [Suspect]
     Active Substance: CEFTAROLINE FOSAMIL
     Indication: EXTRADURAL ABSCESS
     Dosage: UNK
     Route: 042
  2. CEFTAROLINE FOSAMIL ACETATE [Suspect]
     Active Substance: CEFTAROLINE FOSAMIL
     Indication: OSTEOMYELITIS
  3. CUBICIN [Suspect]
     Active Substance: DAPTOMYCIN
     Indication: OSTEOMYELITIS
  4. CUBICIN [Suspect]
     Active Substance: DAPTOMYCIN
     Indication: EXTRADURAL ABSCESS
     Dosage: UNK
     Route: 042

REACTIONS (1)
  - Eosinophilic pneumonia acute [Recovering/Resolving]
